FAERS Safety Report 13701394 (Version 1)
Quarter: 2017Q2

REPORT INFORMATION
  Report Type: Spontaneous
  Country: US (occurrence: US)
  Receive Date: 20170629
  Receipt Date: 20170629
  Transmission Date: 20170830
  Serious: Yes (Hospitalization, Other)
  Sender: FDA-Public Use
  Company Number: US-BAYER-2017-120729

PATIENT
  Sex: Male

DRUGS (7)
  1. BAYER LOW DOSE [Suspect]
     Active Substance: ASPIRIN
     Dosage: UNK
     Route: 048
  2. NITROGLYCERIN. [Suspect]
     Active Substance: NITROGLYCERIN
     Indication: MYOCARDIAL INFARCTION
     Dosage: 0.4 MG, UNK
     Route: 060
  3. INSULIN [Concomitant]
     Active Substance: INSULIN NOS
     Indication: DIABETES MELLITUS
     Dosage: UNK
  4. BAYER LOW DOSE [Suspect]
     Active Substance: ASPIRIN
     Dosage: CHEW UP 4DF
     Route: 048
     Dates: start: 20170610, end: 20170610
  5. NITROGLYCERIN. [Suspect]
     Active Substance: NITROGLYCERIN
     Indication: MYOCARDIAL INFARCTION
     Dosage: 0.4 MG, UNK
     Route: 060
     Dates: start: 2001
  6. NITROGLYCERIN. [Suspect]
     Active Substance: NITROGLYCERIN
     Indication: MYOCARDIAL INFARCTION
     Dosage: 1DF AT FIRST , THEN TOOK 2ND, AT LAST 3DF AT ONCE
     Route: 060
     Dates: start: 20170610, end: 20170610
  7. TAMSULOSIN [Concomitant]
     Active Substance: TAMSULOSIN
     Indication: PROSTATIC DISORDER

REACTIONS (4)
  - Chest pain [Recovered/Resolved]
  - Drug ineffective [Unknown]
  - Angina pectoris [Recovered/Resolved]
  - Headache [None]

NARRATIVE: CASE EVENT DATE: 20170610
